APPROVED DRUG PRODUCT: CARBAMAZEPINE
Active Ingredient: CARBAMAZEPINE
Strength: 200MG
Dosage Form/Route: TABLET, CHEWABLE;ORAL
Application: A075687 | Product #002
Applicant: TARO PHARMACEUTICAL INDUSTRIES LTD
Approved: Jul 29, 2002 | RLD: No | RS: Yes | Type: RX